FAERS Safety Report 7957913-3 (Version None)
Quarter: 2011Q4

REPORT INFORMATION
  Report Type: 
  Country: None (occurrence: None)
  Receive Date: 20111201
  Receipt Date: 20111117
  Transmission Date: 20120403
  Serious: Yes (Other)
  Sender: FDA-Public Use
  Company Number: 2011GB0337

PATIENT
  Age: 33 Year
  Sex: Male

DRUGS (7)
  1. ACYCLOVIR [Concomitant]
  2. METOCLOPRAMIDE [Concomitant]
  3. KEPIVANCE [Suspect]
     Indication: STOMATITIS
     Dosage: (5 MG,DAY1, DAY2, DAY3) INTRAVENOUS
     Route: 042
     Dates: start: 20111112, end: 20111114
  4. KEPIVANCE [Suspect]
     Indication: PROPHYLAXIS
     Dosage: (5 MG,DAY1, DAY2, DAY3) INTRAVENOUS
     Route: 042
     Dates: start: 20111112, end: 20111114
  5. LANSOPRAZOLE [Concomitant]
  6. VORICONAZOLE [Concomitant]
  7. ACETAMINOPHEN [Concomitant]

REACTIONS (3)
  - DRUG INTOLERANCE [None]
  - TOXICITY TO VARIOUS AGENTS [None]
  - DRUG HYPERSENSITIVITY [None]
